FAERS Safety Report 7810429-7 (Version None)
Quarter: 2011Q4

REPORT INFORMATION
  Report Type: 
  Country: None (occurrence: None)
  Receive Date: 20111012
  Receipt Date: 20111007
  Transmission Date: 20120403
  Serious: Yes (Hospitalization)
  Sender: FDA-Public Use
  Company Number: JP-MERCK-1106USA03670

PATIENT
  Age: 82 Year
  Sex: Male
  Weight: 49 kg

DRUGS (9)
  1. JANUVIA [Suspect]
     Indication: DIABETES MELLITUS
     Route: 048
     Dates: start: 20110524
  2. URIEF [Concomitant]
     Route: 048
  3. PHENYTOIN SODIUM CAP [Suspect]
     Route: 048
     Dates: start: 20110614
  4. GOSHA-JINKI-GAN [Concomitant]
     Route: 048
  5. PHENYTOIN SODIUM CAP [Suspect]
     Indication: EPILEPSY
     Route: 048
     Dates: start: 20090713, end: 20110613
  6. LOXONIN [Concomitant]
     Route: 048
  7. ENCHININ [Concomitant]
     Route: 048
  8. AMLODIN OD [Concomitant]
     Route: 048
  9. YOKU-KAN-SAN [Concomitant]
     Route: 048

REACTIONS (4)
  - ALTERED STATE OF CONSCIOUSNESS [None]
  - DIZZINESS [None]
  - SPEECH DISORDER [None]
  - DRUG LEVEL INCREASED [None]
